FAERS Safety Report 6384936-0 (Version None)
Quarter: 2009Q4

REPORT INFORMATION
  Report Type: 
  Country: None (occurrence: None)
  Receive Date: 20091002
  Receipt Date: 20090910
  Transmission Date: 20100525
  Serious: No
  Sender: FDA-Public Use
  Company Number: A0800426A

PATIENT
  Age: 81 Year
  Sex: Female

DRUGS (8)
  1. REQUIP XL [Suspect]
     Indication: RESTLESS LEGS SYNDROME
     Dosage: 2MG PER DAY
     Route: 048
     Dates: start: 20090717
  2. LOVASTATIN [Concomitant]
  3. CITALOPRAM [Concomitant]
  4. SYNTHROID [Concomitant]
  5. CLONAZEPAM [Concomitant]
  6. TOPROL-XL [Concomitant]
  7. GLIMEPIRIDE [Concomitant]
  8. DICLOFENAC SODIUM [Concomitant]

REACTIONS (1)
  - MEDICATION RESIDUE [None]
